FAERS Safety Report 4963733-4 (Version None)
Quarter: 2006Q1

REPORT INFORMATION
  Report Type: 
  Country: None (occurrence: None)
  Receive Date: 20060330
  Receipt Date: 20060320
  Transmission Date: 20060701
  Serious: Yes (Death)
  Sender: FDA-Public Use
  Company Number: 200611756BWH

PATIENT
  Age: 78 Year
  Sex: Male

DRUGS (7)
  1. CIPROFLOXACIN HCL [Suspect]
     Indication: SKIN INFECTION
  2. LEVAQUIN [Suspect]
     Indication: NASOPHARYNGITIS
     Dosage: 500 MG, ORAL
     Route: 048
  3. NITROFURANTOIN [Concomitant]
  4. IRON [Concomitant]
  5. PETHIDINE HYDROCHLORIDE [Concomitant]
  6. VICODIN [Concomitant]
  7. FUROSEMIDE [Concomitant]

REACTIONS (2)
  - CLOSTRIDIAL INFECTION [None]
  - SKIN INFECTION [None]
